FAERS Safety Report 10265619 (Version 1)
Quarter: 2014Q2

REPORT INFORMATION
  Report Type: Report from Study
  Country: US (occurrence: US)
  Receive Date: 20140627
  Receipt Date: 20140627
  Transmission Date: 20141212
  Serious: Yes (Other)
  Sender: FDA-Public Use
  Company Number: PHEH2014US012834

PATIENT
  Sex: Male

DRUGS (9)
  1. TASIGNA [Suspect]
     Indication: CHRONIC MYELOID LEUKAEMIA
     Dosage: 200 MG, BID
     Route: 048
     Dates: start: 20110725, end: 20140104
  2. SONATA [Concomitant]
  3. LOMOTIL [Concomitant]
  4. EFEXOR XR [Concomitant]
  5. NEXIUM [Concomitant]
  6. CYCLOBENZAPRINE [Concomitant]
  7. ANDROGEL [Concomitant]
  8. NABUMETONE [Concomitant]
  9. VICODIN [Concomitant]

REACTIONS (1)
  - Osteoarthritis [Unknown]
